FAERS Safety Report 19880464 (Version 2)
Quarter: 2021Q4

REPORT INFORMATION
  Report Type: Spontaneous
  Country: US (occurrence: US)
  Receive Date: 20210924
  Receipt Date: 20211006
  Transmission Date: 20220303
  Serious: Yes (Other)
  Sender: FDA-Public Use
  Company Number: NVSC2021US213560

PATIENT
  Age: 59 Year
  Sex: Female
  Weight: 61.23 kg

DRUGS (2)
  1. ZOMETA [Suspect]
     Active Substance: ZOLEDRONIC ACID
     Indication: Osteoporosis
     Dosage: 5 MG, ONCE/SINGLE SOLUTION
     Route: 042
     Dates: start: 20210910, end: 20210910
  2. ZOMETA [Suspect]
     Active Substance: ZOLEDRONIC ACID
     Dosage: Q6MO
     Route: 042
     Dates: start: 20210911, end: 20210911

REACTIONS (4)
  - Neuralgic amyotrophy [Recovering/Resolving]
  - Pain in extremity [Recovering/Resolving]
  - Asthenia [Recovering/Resolving]
  - Inappropriate schedule of product administration [Unknown]

NARRATIVE: CASE EVENT DATE: 20210911
